FAERS Safety Report 7345548-5 (Version None)
Quarter: 2011Q1

REPORT INFORMATION
  Report Type: 
  Country: None (occurrence: None)
  Receive Date: 20110310
  Receipt Date: 20110304
  Transmission Date: 20110831
  Serious: Yes (Death, Other)
  Sender: FDA-Public Use
  Company Number: CN-MERCK-1103CHN00015

PATIENT
  Age: 54 Year
  Sex: Male

DRUGS (2)
  1. CANCIDAS [Suspect]
     Indication: UPPER RESPIRATORY FUNGAL INFECTION
     Route: 042
  2. VORICONAZOLE [Concomitant]
     Indication: UPPER RESPIRATORY FUNGAL INFECTION
     Route: 042

REACTIONS (2)
  - ENCEPHALITIS [None]
  - DEATH [None]
